FAERS Safety Report 19505567 (Version 1)
Quarter: 2021Q3

REPORT INFORMATION
  Report Type: Spontaneous
  Country: DE (occurrence: DE)
  Receive Date: 20210708
  Receipt Date: 20210708
  Transmission Date: 20211014
  Serious: Yes (Life-Threatening, Hospitalization)
  Sender: FDA-Public Use
  Company Number: DE-TEVA-2021-DE-1929012

PATIENT
  Age: 68 Year
  Sex: Female
  Weight: 55 kg

DRUGS (19)
  1. XIPAMID [Suspect]
     Active Substance: XIPAMIDE
     Dosage: 40 MILLIGRAM DAILY;  1?0?0?0,MEDICATION ERRORS
     Route: 048
  2. CANDESARTAN. [Concomitant]
     Active Substance: CANDESARTAN
     Dosage: 16 MILLIGRAM DAILY; 16 MG, 1?0?0?0
     Route: 048
  3. TRAMADOL. [Suspect]
     Active Substance: TRAMADOL
     Dosage: 200 MILLIGRAM DAILY; 100 MG, 2?0?0?0,MEDICATION ERRORS
     Route: 048
  4. PREDNISOLON [Concomitant]
     Active Substance: PREDNISOLONE
     Dosage: 5 MILLIGRAM DAILY; 1?0?0?0
     Route: 048
  5. ATORVASTATIN [Concomitant]
     Active Substance: ATORVASTATIN
     Dosage: 40 MILLIGRAM DAILY; 0?0?1?0
     Route: 048
  6. ZOPICLON [Concomitant]
     Active Substance: ZOPICLONE
     Dosage: 7.5 MILLIGRAM DAILY; 0?0?0?1
     Route: 048
  7. SEVELAMER [Suspect]
     Active Substance: SEVELAMER
     Dosage: 2400 MILLIGRAM DAILY;  1?1?1?0,MEDICATION ERRORS
     Route: 048
  8. METAMIZOL [Concomitant]
     Active Substance: METAMIZOLE SODIUM
     Dosage: 500 MG, AS NEEDED
     Route: 048
  9. URAPIDIL [Concomitant]
     Active Substance: URAPIDIL
     Dosage: 60 MILLIGRAM DAILY; 30 MG, 1?0?0?1
     Route: 048
  10. CLOPIDOGREL [Concomitant]
     Active Substance: CLOPIDOGREL BISULFATE
     Dosage: 75 MILLIGRAM DAILY; 1?0?0?0
     Route: 048
  11. TORASEMID [Suspect]
     Active Substance: TORSEMIDE
     Dosage: 200 MILLIGRAM DAILY; 1?0?0?0,MEDICATION ERRORS
     Route: 048
  12. TACROLIMUS. [Suspect]
     Active Substance: TACROLIMUS
     Dosage: 4 MILLIGRAM DAILY; 1 MG, 2?0?2?0,MEDICATION ERRORS
     Route: 048
  13. AMLODIPIN [Concomitant]
     Active Substance: AMLODIPINE BESYLATE
     Dosage: 10 MILLIGRAM DAILY; 0?0?1?0
     Route: 048
  14. ACETYLSALICYLSAURE [Concomitant]
     Active Substance: ASPIRIN
     Dosage: 100 MILLIGRAM DAILY; 0?1?0?0
     Route: 048
  15. CLONIDIN [Suspect]
     Active Substance: CLONIDINE
     Dosage: 0.15 MG, 1?1?0?0, UNIT DOSE: 0.3MG,MEDICATION ERRORS
     Route: 048
  16. MYCOPHENOLSAURE [Suspect]
     Active Substance: MYCOPHENOLIC ACID
     Dosage: 720 MILLIGRAM DAILY;  1?0?1?0, MEDICATION ERROR
     Route: 048
  17. LEVOTHYROXIN?NATRIUM [Concomitant]
     Active Substance: LEVOTHYROXINE SODIUM
     Dosage: 275 MICROGRAM DAILY;  1?0?0?0
     Route: 048
  18. ESOMEPRAZOL [Concomitant]
     Active Substance: ESOMEPRAZOLE
     Dosage: 40 MILLIGRAM DAILY; 1?0?0?0
     Route: 048
  19. BISOPROLOL [Concomitant]
     Active Substance: BISOPROLOL
     Dosage: 10 MILLIGRAM DAILY; 1?0?1?0
     Route: 048

REACTIONS (10)
  - Oedema peripheral [Unknown]
  - Constipation [Unknown]
  - General physical health deterioration [Unknown]
  - Gastrointestinal sounds abnormal [Unknown]
  - Product monitoring error [Unknown]
  - Vomiting [Unknown]
  - Product prescribing error [Unknown]
  - Abdominal pain [Unknown]
  - Nausea [Unknown]
  - Flatulence [Unknown]
